FAERS Safety Report 8664146 (Version 2)
Quarter: 2013Q1

REPORT INFORMATION
  Report Type: Spontaneous
  Country: CH (occurrence: CH)
  Receive Date: 20120713
  Receipt Date: 20130212
  Transmission Date: 20140127
  Serious: No
  Sender: FDA-Public Use
  Company Number: CH-ROCHE-1047205

PATIENT
  Age: 31 Year
  Sex: Female

DRUGS (2)
  1. ROACCUTAN [Suspect]
     Indication: ACNE
     Route: 064
     Dates: start: 201108, end: 201108
  2. ROACCUTAN [Suspect]
     Route: 064
     Dates: start: 201108, end: 20111211

REACTIONS (1)
  - Exposure during pregnancy [Unknown]
